FAERS Safety Report 8793247 (Version 1)
Quarter: 2012Q4

REPORT INFORMATION
  Report Type: 
  Country: US (occurrence: US)
  Receive Date: 20120917
  Receipt Date: 20120917
  Transmission Date: 20130627
  Serious: Yes (Congenital Anomaly)
  Sender: FDA-Public Use
  Company Number: US-BAYER-2012-093724

PATIENT

DRUGS (8)
  1. DACARBAZINE [Suspect]
  2. DACARBAZINE [Suspect]
  3. TAMOXIFEN [Suspect]
     Route: 063
  4. TAMOXIFEN [Suspect]
     Route: 063
  5. CARMUSTINE [Suspect]
     Route: 063
  6. CARMUSTINE [Suspect]
     Route: 063
  7. CISPLATIN [Suspect]
     Route: 063
  8. CISPLATIN [Suspect]
     Route: 063

REACTIONS (4)
  - Atrial septal defect [None]
  - Growth retardation [None]
  - Strabismus [None]
  - Melanocytic naevus [None]
